FAERS Safety Report 16323547 (Version 11)
Quarter: 2021Q1

REPORT INFORMATION
  Report Type: Other
  Country: DE (occurrence: DE)
  Receive Date: 20190517
  Receipt Date: 20210108
  Transmission Date: 20210419
  Serious: Yes (Hospitalization, Other)
  Sender: FDA-Public Use
  Company Number: DE-ROCHE-2267069

PATIENT
  Age: 57 Year
  Sex: Male

DRUGS (8)
  1. OMEPRAZOL [Concomitant]
     Active Substance: OMEPRAZOLE
  2. XARELTO [Suspect]
     Active Substance: RIVAROXABAN
     Route: 065
  3. OCREVUS [Suspect]
     Active Substance: OCRELIZUMAB
     Dosage: 5TH INFUSION
     Route: 042
     Dates: start: 20191220
  4. IBUPROFEN. [Concomitant]
     Active Substance: IBUPROFEN
  5. OCREVUS [Suspect]
     Active Substance: OCRELIZUMAB
     Indication: PRIMARY PROGRESSIVE MULTIPLE SCLEROSIS
     Route: 042
     Dates: start: 20180615
  6. XARELTO [Suspect]
     Active Substance: RIVAROXABAN
     Indication: PRODUCT USED FOR UNKNOWN INDICATION
     Route: 065
  7. AMLODIPIN [Concomitant]
     Active Substance: AMLODIPINE BESYLATE
  8. OCREVUS [Suspect]
     Active Substance: OCRELIZUMAB
     Dosage: 6TH INFUSION
     Route: 042
     Dates: start: 20200605

REACTIONS (18)
  - Multiple sclerosis [Not Recovered/Not Resolved]
  - Nasopharyngitis [Recovered/Resolved]
  - Arrhythmia [Recovered/Resolved]
  - Body temperature increased [Recovered/Resolved]
  - Constipation [Recovered/Resolved]
  - Cholecystitis infective [Recovered/Resolved]
  - Multiple sclerosis [Recovered/Resolved]
  - Fall [Unknown]
  - Bleeding time prolonged [Recovered/Resolved]
  - Intervertebral disc protrusion [Recovering/Resolving]
  - Road traffic accident [Unknown]
  - Fall [Unknown]
  - Mental impairment [Recovered/Resolved]
  - Cholelithiasis [Recovered/Resolved]
  - Dehydration [Recovered/Resolved]
  - Drug ineffective [Unknown]
  - Hypertension [Recovered/Resolved]
  - Skin laceration [Recovered/Resolved]

NARRATIVE: CASE EVENT DATE: 20190131
